FAERS Safety Report 22091600 (Version 2)
Quarter: 2023Q1

REPORT INFORMATION
  Report Type: Report from Study
  Country: US (occurrence: US)
  Receive Date: 20230314
  Receipt Date: 20230315
  Transmission Date: 20230417
  Serious: No
  Sender: FDA-Public Use
  Company Number: US-002147023-NVSC2023US054293

PATIENT
  Sex: Female

DRUGS (2)
  1. TABRECTA [Suspect]
     Active Substance: CAPMATINIB
     Indication: Lung neoplasm malignant
     Dosage: 400 MG, BID
     Route: 048
     Dates: start: 20230209
  2. TABRECTA [Suspect]
     Active Substance: CAPMATINIB
     Dosage: UNK, 200MG IN THE MORNING AND 400MG IN THE EVENING
     Route: 065

REACTIONS (11)
  - Blood pressure decreased [Unknown]
  - Motion sickness [Unknown]
  - Panic attack [Unknown]
  - Dizziness [Unknown]
  - Neck pain [Unknown]
  - Nausea [Unknown]
  - Peripheral swelling [Unknown]
  - Fatigue [Unknown]
  - Asthenia [Unknown]
  - Back pain [Unknown]
  - Product dose omission issue [Unknown]
